FAERS Safety Report 10185655 (Version 2)
Quarter: 2014Q2

REPORT INFORMATION
  Report Type: Spontaneous
  Country: FR (occurrence: FR)
  Receive Date: 20140521
  Receipt Date: 20140527
  Transmission Date: 20141212
  Serious: Yes (Hospitalization)
  Sender: FDA-Public Use
  Company Number: FR-ACCORD-023765

PATIENT
  Age: 7 Year
  Sex: 0

DRUGS (1)
  1. TRAMADOL/TRAMADOL HYDROCHLORIDE [Suspect]

REACTIONS (9)
  - Accidental exposure to product by child [Unknown]
  - Toxicity to various agents [Recovered/Resolved]
  - Convulsion [Recovered/Resolved]
  - Respiratory distress [Recovered/Resolved]
  - Cardiogenic shock [Recovered/Resolved]
  - Hepatomegaly [None]
  - Acute pulmonary oedema [None]
  - Left ventricular dysfunction [None]
  - Mitral valve incompetence [None]
